FAERS Safety Report 6674268-5 (Version None)
Quarter: 2010Q1

REPORT INFORMATION
  Report Type: 
  Country: None (occurrence: None)
  Receive Date: 20100329
  Receipt Date: 20090607
  Transmission Date: 20100710
  Serious: Yes (Hospitalization)
  Sender: FDA-Public Use
  Company Number: 2009194573

PATIENT
  Sex: Female

DRUGS (1)
  1. GEODON [Suspect]
     Indication: MANIA
     Dosage: 20 MG, 2X/DAY

REACTIONS (1)
  - ANGINA PECTORIS [None]
